FAERS Safety Report 10073594 (Version 1)
Quarter: 2014Q2

REPORT INFORMATION
  Report Type: Spontaneous
  Country: IT (occurrence: IT)
  Receive Date: 20140411
  Receipt Date: 20140411
  Transmission Date: 20141212
  Serious: Yes (Other)
  Sender: FDA-Public Use
  Company Number: IT-MPIJNJ-2014JNJ001854

PATIENT
  Sex: 0

DRUGS (9)
  1. VELCADE [Suspect]
     Indication: PRODUCT USED FOR UNKNOWN INDICATION
     Dosage: UNK
     Route: 065
     Dates: start: 201105, end: 201305
  2. CYCLOPHOSPHAMIDE [Concomitant]
     Dosage: UNK
     Dates: start: 201105, end: 201305
  3. DEXAMETHASONE [Concomitant]
     Dosage: UNK
     Dates: start: 201105, end: 201305
  4. DEXAMETHASONE [Concomitant]
     Dosage: 20 MG, UNK
     Route: 048
     Dates: start: 20131009, end: 20131016
  5. VALSARTAN [Concomitant]
     Indication: HYPERTENSION
  6. OMEPRAZOLE [Concomitant]
     Dosage: 20 MG, UNK
  7. ACETYLSALICYLIC ACID [Concomitant]
     Dosage: 100 MG, UNK
  8. ALLOPURINOL [Concomitant]
     Indication: HYPERURICAEMIA
     Dosage: 200 MG, UNK
  9. REVLIMID [Concomitant]
     Indication: AMYLOIDOSIS
     Dosage: 10 MG, UNK
     Route: 048
     Dates: start: 20131009, end: 20131018

REACTIONS (1)
  - Prostate cancer [Not Recovered/Not Resolved]
